FAERS Safety Report 11389745 (Version 1)
Quarter: 2015Q3

REPORT INFORMATION
  Report Type: Spontaneous
  Country: SI (occurrence: SI)
  Receive Date: 20150817
  Receipt Date: 20150817
  Transmission Date: 20151125
  Serious: Yes (Death, Other)
  Sender: FDA-Public Use
  Company Number: SI-IMPAX LABORATORIES, INC-2015-IPXL-00824

PATIENT
  Age: 67 Year
  Sex: Male

DRUGS (2)
  1. CARBIDOPA-LEVODOPA ER [Suspect]
     Active Substance: CARBIDOPA\LEVODOPA
     Dosage: 150 MG, BEDTIME
     Route: 048
  2. CARBIDOPA-LEVODOPA ER [Suspect]
     Active Substance: CARBIDOPA\LEVODOPA
     Indication: PARKINSON^S DISEASE
     Dosage: 1,184 MG (DAY)
     Route: 048

REACTIONS (1)
  - Completed suicide [Fatal]
